FAERS Safety Report 25214559 (Version 1)
Quarter: 2025Q2

REPORT INFORMATION
  Report Type: Report from Study
  Country: US (occurrence: US)
  Receive Date: 20250418
  Receipt Date: 20250418
  Transmission Date: 20250716
  Serious: Yes (Other)
  Sender: EXELIXIS
  Company Number: US-EXELIXIS-EXL-2025-006856

PATIENT
  Sex: Female
  Weight: 90.485 kg

DRUGS (2)
  1. CABOMETYX [Suspect]
     Active Substance: CABOZANTINIB S-MALATE
     Indication: Renal cancer
  2. HYDROCHLOROTHIAZIDE [Concomitant]
     Active Substance: HYDROCHLOROTHIAZIDE

REACTIONS (14)
  - Neuropathy peripheral [Unknown]
  - Malignant neoplasm progression [Unknown]
  - Illness [Unknown]
  - Hyperkeratosis [Unknown]
  - Blood potassium decreased [Unknown]
  - Nausea [Recovered/Resolved]
  - Fatigue [Unknown]
  - Decreased appetite [Unknown]
  - Dizziness [Unknown]
  - Blister [Unknown]
  - Scar [Unknown]
  - Heart rate decreased [Unknown]
  - Sleep disorder [Unknown]
  - Pollakiuria [Unknown]
